FAERS Safety Report 18014501 (Version 1)
Quarter: 2020Q3

REPORT INFORMATION
  Report Type: Spontaneous
  Country: US (occurrence: US)
  Receive Date: 20200713
  Receipt Date: 20200713
  Transmission Date: 20201103
  Serious: Yes (Hospitalization)
  Sender: FDA-Public Use
  Company Number: None

PATIENT
  Age: 65 Year
  Sex: Female
  Weight: 46.35 kg

DRUGS (6)
  1. CLOPIDOGREL [Concomitant]
     Active Substance: CLOPIDOGREL BISULFATE
  2. HYDROCODONE 5/ACETAMINOPHEN 325MG [Concomitant]
  3. CALCIUM 500MG [Concomitant]
  4. ROSUVASTATIN 5MG [Concomitant]
     Active Substance: ROSUVASTATIN
  5. CLONAZEPAM 0.50MG TABLET [Suspect]
     Active Substance: CLONAZEPAM
     Indication: POST-TRAUMATIC STRESS DISORDER
  6. VIT D 200IU WHEN HOSPITALIZED [Concomitant]

REACTIONS (6)
  - Red blood cell count decreased [None]
  - Platelet count decreased [None]
  - Liver function test abnormal [None]
  - Hypoaesthesia [None]
  - Infection [None]
  - Thrombosis [None]

NARRATIVE: CASE EVENT DATE: 20190930
